FAERS Safety Report 18505317 (Version 1)
Quarter: 2020Q4

REPORT INFORMATION
  Report Type: Spontaneous
  Country: DE (occurrence: DE)
  Receive Date: 20201116
  Receipt Date: 20201116
  Transmission Date: 20210114
  Serious: Yes (Hospitalization)
  Sender: FDA-Public Use
  Company Number: DE-TEVA-2020-DE-1848037

PATIENT
  Age: 78 Year
  Sex: Female
  Weight: 85 kg

DRUGS (8)
  1. TORASEMID [Suspect]
     Active Substance: TORSEMIDE
     Dosage: 10 MILLIGRAM DAILY;  1-0-0-0
     Route: 065
  2. AMLODIPIN/VALSARTAN [Suspect]
     Active Substance: AMLODIPINE\VALSARTAN
     Dosage: 1 DOSAGE FORMS DAILY; 5|160 MG, 1-0-0-0
     Route: 065
  3. TRULICITY 1,5MG [Concomitant]
     Dosage: 1.5 MG, WEDNESDAY
  4. HUMALOG 100EINHEITEN/ML INJEKTIONSL SUNG [Concomitant]
     Dosage: ACCORDING TO SCHEME
     Route: 058
  5. BISOPROLOL [Suspect]
     Active Substance: BISOPROLOL
     Dosage: 5 MILLIGRAM DAILY; 1-0-0-0
     Route: 065
  6. ACETYLSALICYLSAURE [Concomitant]
     Active Substance: ASPIRIN
     Dosage: 100 MILLIGRAM DAILY; 1-0-0-0
  7. HUMALOG MIX [Concomitant]
     Active Substance: INSULIN LISPRO
     Dosage: 14 DOSAGE FORMS DAILY; 0-0-0-14
     Route: 058
  8. ROSUVASTATIN. [Concomitant]
     Active Substance: ROSUVASTATIN
     Dosage: 10 MILLIGRAM DAILY; 1-0-0-0

REACTIONS (7)
  - Headache [Unknown]
  - Hypotension [Unknown]
  - Balance disorder [Unknown]
  - Giant cell arteritis [Unknown]
  - Dizziness [Unknown]
  - Gait disturbance [Unknown]
  - Electrolyte imbalance [Unknown]
